FAERS Safety Report 24805359 (Version 1)
Quarter: 2025Q1

REPORT INFORMATION
  Report Type: Spontaneous
  Country: DE (occurrence: DE)
  Receive Date: 20250103
  Receipt Date: 20250103
  Transmission Date: 20250409
  Serious: Yes (Hospitalization, Other)
  Sender: SANOFI AVENTIS
  Company Number: DE-EMA-DD-20240417-7482679-083717

PATIENT
  Age: 91 Year
  Sex: Male

DRUGS (16)
  1. IBUPROFEN [Suspect]
     Active Substance: IBUPROFEN
     Indication: Product used for unknown indication
     Dates: start: 20230509, end: 202309
  2. IBUPROFEN [Suspect]
     Active Substance: IBUPROFEN
     Dates: start: 202307, end: 202309
  3. IBUPROFEN [Suspect]
     Active Substance: IBUPROFEN
     Dates: start: 202305, end: 202309
  4. IBUPROFEN [Suspect]
     Active Substance: IBUPROFEN
     Dosage: 350 MG, Q3W
     Dates: start: 20221014
  5. IBUPROFEN [Suspect]
     Active Substance: IBUPROFEN
     Dates: start: 2022
  6. PANTOPRAZOLE [Suspect]
     Active Substance: PANTOPRAZOLE
     Indication: Product used for unknown indication
     Dates: start: 2022
  7. CEMIPLIMAB [Suspect]
     Active Substance: CEMIPLIMAB
     Indication: Squamous cell carcinoma of skin
     Dosage: 350 MG, Q3W
     Route: 042
  8. CLOBETASOL PROPIONATE [Suspect]
     Active Substance: CLOBETASOL PROPIONATE
     Indication: Product used for unknown indication
     Dates: start: 202307, end: 202309
  9. CLEMASTINE FUMARATE [Suspect]
     Active Substance: CLEMASTINE FUMARATE
     Indication: Product used for unknown indication
     Dates: start: 202305, end: 202309
  10. DESLORATADINE [Suspect]
     Active Substance: DESLORATADINE
     Indication: Product used for unknown indication
     Dates: start: 202305, end: 202309
  11. ZOLPIDEM TARTRATE [Suspect]
     Active Substance: ZOLPIDEM TARTRATE
     Indication: Product used for unknown indication
     Dates: start: 2022
  12. UREA [Suspect]
     Active Substance: UREA
     Indication: Product used for unknown indication
     Dates: start: 202305, end: 202309
  13. UREA [Suspect]
     Active Substance: UREA
     Dates: start: 20230519
  14. POLIDOCANOL\UREA [Concomitant]
     Active Substance: POLIDOCANOL\UREA
     Indication: Product used for unknown indication
     Dates: start: 20230519
  15. OPIPRAMOL [Concomitant]
     Active Substance: OPIPRAMOL
     Indication: Product used for unknown indication
     Dates: start: 2022
  16. IBUPROFEN [Concomitant]
     Active Substance: IBUPROFEN
     Indication: Product used for unknown indication
     Dates: start: 2022

REACTIONS (2)
  - Pemphigoid [Recovered/Resolved]
  - Dermatitis bullous [Recovered/Resolved]

NARRATIVE: CASE EVENT DATE: 20230830
